FAERS Safety Report 11046928 (Version 1)
Quarter: 2015Q2

REPORT INFORMATION
  Report Type: Spontaneous
  Country: SE (occurrence: None)
  Receive Date: 20150416
  Receipt Date: 20150416
  Transmission Date: 20150821
  Serious: Yes (Death, Hospitalization)
  Sender: FDA-Public Use
  Company Number: 2634459

PATIENT
  Age: 80 Year
  Sex: Male
  Weight: 70 kg

DRUGS (3)
  1. DEXMEDETOMIDINE HYDROCHLORIDE. [Suspect]
     Active Substance: DEXMEDETOMIDINE HYDROCHLORIDE
     Indication: SEDATION
     Dosage: 14748 ML = 117984 MG; STRENGTH: 8 MCG,ML, (UNKNOWN) INTRAVENOUS (NOT OTHERWISE SPECIFIED)
     Route: 042
  2. KETOBEMIDONE HYDROCHLORIDE [Suspect]
     Active Substance: KETOBEMIDONE HYDROCHLORIDE
     Indication: DRUG THERAPY
     Dosage: 24 ML = 24 MG; STRENGTH: 1 MG/ML, (UNKNOWN) INTRAVENOUS (NOT OTHERWISE SPECIFIED)
     Route: 042
  3. PROPOFOL. [Suspect]
     Active Substance: PROPOFOL
     Dosage: 120 ML, 2.4 G = 2400 MG; STRENGTH: 20 MG/ML (UNKNOWN) INTRAVENOUS (NOT OTHERWISE SPECIFIED)?
     Route: 042

REACTIONS (4)
  - Respiratory failure [None]
  - Circulatory collapse [None]
  - H1N1 influenza [None]
  - Pneumonia [None]

NARRATIVE: CASE EVENT DATE: 20131213
